FAERS Safety Report 8581122-0 (Version None)
Quarter: 2012Q3

REPORT INFORMATION
  Report Type: 
  Country: None (occurrence: None)
  Receive Date: 20120809
  Receipt Date: 20120807
  Transmission Date: 20120928
  Serious: Yes (Death)
  Sender: FDA-Public Use
  Company Number: US-JNJFOC-20120613532

PATIENT
  Age: 59 Year
  Sex: Male

DRUGS (3)
  1. ITRACONAZOLE [Suspect]
     Indication: BLASTOMYCOSIS
     Route: 065
     Dates: start: 20050401, end: 20051001
  2. TACROLIMUS [Suspect]
     Indication: BLASTOMYCOSIS
     Route: 065
  3. MYCOPHENOLATE MOFETIL [Suspect]
     Indication: BLASTOMYCOSIS
     Route: 065

REACTIONS (1)
  - BLASTOMYCOSIS [None]
